FAERS Safety Report 6066170-7 (Version None)
Quarter: 2009Q1

REPORT INFORMATION
  Report Type: 
  Country: None (occurrence: None)
  Receive Date: 20090205
  Receipt Date: 20090126
  Transmission Date: 20090719
  Serious: Yes (Hospitalization, Other)
  Sender: FDA-Public Use
  Company Number: PHHY2009FR02675

PATIENT
  Sex: Female

DRUGS (10)
  1. VOLTAREN [Suspect]
     Indication: BACK PAIN
     Dosage: 1 DF, QD
     Route: 048
     Dates: start: 20080101, end: 20080814
  2. ALDACTAZINE [Suspect]
     Dosage: 1 DF DAILY
     Route: 048
     Dates: end: 20080814
  3. BISOPROLOL [Concomitant]
  4. ALLOPURINOL [Concomitant]
  5. VITAMIN D3 [Concomitant]
  6. DIOSMINE [Concomitant]
  7. TEMESTA [Concomitant]
  8. SIMVASTATIN [Concomitant]
  9. MYOLASTAN [Concomitant]
  10. OMEPRAZOLE [Concomitant]

REACTIONS (20)
  - ABDOMINAL PAIN UPPER [None]
  - ANAEMIA [None]
  - ANGIODYSPLASIA [None]
  - ANOREXIA [None]
  - ASTHENIA [None]
  - COLONIC POLYP [None]
  - COLONOSCOPY [None]
  - DIABETES MELLITUS INADEQUATE CONTROL [None]
  - DIVERTICULUM [None]
  - DUODENAL ULCER [None]
  - DYSPNOEA [None]
  - GENERAL PHYSICAL HEALTH DETERIORATION [None]
  - HIATUS HERNIA [None]
  - HYPERGLYCAEMIA [None]
  - INCONTINENCE [None]
  - MUCOSAL INFLAMMATION [None]
  - OESOPHAGOGASTRODUODENOSCOPY [None]
  - POLYP [None]
  - RENAL FAILURE ACUTE [None]
  - WEIGHT DECREASED [None]
